FAERS Safety Report 6355737-4 (Version None)
Quarter: 2009Q3

REPORT INFORMATION
  Report Type: 
  Country: None (occurrence: None)
  Receive Date: 20090910
  Receipt Date: 20090825
  Transmission Date: 20100115
  Serious: Yes (Death, Hospitalization)
  Sender: FDA-Public Use
  Company Number: 2009AL002498

PATIENT
  Age: 63 Year
  Sex: Male

DRUGS (16)
  1. DIGOXIN [Suspect]
     Dosage: 0.125MG, QD, PO
     Route: 048
  2. FERROUS SULFATE TAB [Concomitant]
  3. ARICEPT [Concomitant]
  4. HUMULIN R [Concomitant]
  5. WARFARIN SODIUM [Concomitant]
  6. NAPROXEN [Concomitant]
  7. LORAZEPAM [Concomitant]
  8. SULFACETAMIDE [Concomitant]
  9. PROPOXYPHENE-N [Concomitant]
  10. SKELAXIN [Concomitant]
  11. METOPROLOL TARTRATE [Concomitant]
  12. HYDROCODONE [Concomitant]
  13. LIPITOR [Concomitant]
  14. CIPROFLAXACIN [Concomitant]
  15. PROMETHAZINE [Concomitant]
  16. AMOXICILLIN [Concomitant]

REACTIONS (6)
  - ANHEDONIA [None]
  - ANXIETY [None]
  - ECONOMIC PROBLEM [None]
  - INJURY [None]
  - PAIN [None]
  - SOCIAL PROBLEM [None]
